FAERS Safety Report 7560669-X (Version None)
Quarter: 2011Q2

REPORT INFORMATION
  Report Type: 
  Country: None (occurrence: None)
  Receive Date: 20110621
  Receipt Date: 20110616
  Transmission Date: 20111010
  Serious: Yes (Hospitalization, Other)
  Sender: FDA-Public Use
  Company Number: US-ABBOTT-08P-163-0477679-00

PATIENT
  Sex: Male
  Weight: 102.15 kg

DRUGS (11)
  1. PLAVIX [Concomitant]
     Indication: CARDIOVASCULAR DISORDER
  2. NOVOLIN 70/30 [Concomitant]
     Indication: DIABETES MELLITUS
  3. LEVOTHYROXINE SODIUM [Concomitant]
     Indication: HYPOTHYROIDISM
  4. METOPROLOL TARTRATE [Concomitant]
     Indication: CARDIOVASCULAR DISORDER
  5. FUROSEMIDE [Concomitant]
     Indication: CARDIAC FAILURE CONGESTIVE
  6. LISINOPRIL [Concomitant]
     Indication: PRODUCT USED FOR UNKNOWN INDICATION
  7. DIGOXIN [Concomitant]
     Indication: CARDIOVASCULAR DISORDER
  8. GLIPIZIDE [Concomitant]
     Indication: DIABETES MELLITUS
  9. HUMIRA [Suspect]
     Indication: PSORIASIS
     Route: 050
     Dates: start: 20060625, end: 20091206
  10. RANITIDINE [Concomitant]
     Indication: GASTROINTESTINAL DISORDER
  11. ALLOPURINOL [Concomitant]
     Indication: BLOOD URIC ACID INCREASED
     Dates: start: 20110101

REACTIONS (11)
  - MYOCARDIAL INFARCTION [None]
  - PROSTATIC SPECIFIC ANTIGEN INCREASED [None]
  - PSORIASIS [None]
  - ATRIAL TACHYCARDIA [None]
  - EJECTION FRACTION DECREASED [None]
  - CARDIOVASCULAR DISORDER [None]
  - RENAL FAILURE CHRONIC [None]
  - BLOOD URIC ACID INCREASED [None]
  - AORTIC VALVE CALCIFICATION [None]
  - AORTIC STENOSIS [None]
  - PRECANCEROUS CELLS PRESENT [None]
